FAERS Safety Report 24448181 (Version 1)
Quarter: 2024Q4

REPORT INFORMATION
  Report Type: Spontaneous
  Country: DE (occurrence: DE)
  Receive Date: 20241016
  Receipt Date: 20241016
  Transmission Date: 20250114
  Serious: Yes (Other)
  Sender: ABBVIE
  Company Number: DE-ABBVIE-5961908

PATIENT
  Age: 80 Year
  Sex: Male

DRUGS (1)
  1. VENETOCLAX [Suspect]
     Active Substance: VENETOCLAX
     Indication: Blastic plasmacytoid dendritic cell neoplasia
     Route: 048

REACTIONS (6)
  - Pancytopenia [Unknown]
  - Gastric haemorrhage [Unknown]
  - Confusional state [Unknown]
  - Drug ineffective [Unknown]
  - Off label use [Unknown]
  - Bone marrow disorder [Unknown]
